FAERS Safety Report 6810723-2 (Version None)
Quarter: 2010Q2

REPORT INFORMATION
  Report Type: 
  Country: None (occurrence: None)
  Receive Date: 20100630
  Receipt Date: 20071201
  Transmission Date: 20101027
  Serious: No
  Sender: FDA-Public Use
  Company Number: US-PFIZER INC-2007090472

PATIENT
  Sex: Female
  Weight: 77.56 kg

DRUGS (5)
  1. ESTRING [Suspect]
     Indication: VULVOVAGINAL DRYNESS
  2. REQUIP [Concomitant]
  3. AMBIEN [Concomitant]
  4. MECLIZINE [Concomitant]
  5. PAXIL CR [Concomitant]

REACTIONS (3)
  - DRUG INEFFECTIVE [None]
  - HOT FLUSH [None]
  - VULVOVAGINAL DRYNESS [None]
